FAERS Safety Report 16455750 (Version 1)
Quarter: 2019Q2

REPORT INFORMATION
  Report Type: Spontaneous
  Country: FR (occurrence: FR)
  Receive Date: 20190620
  Receipt Date: 20190620
  Transmission Date: 20190711
  Serious: Yes (Hospitalization)
  Sender: FDA-Public Use
  Company Number: FR-TEVA-2019-FR-1065523

PATIENT
  Age: 56 Year
  Sex: Female

DRUGS (3)
  1. IZALGI 500 MG / 25 MG HARD CAPSULE [Suspect]
     Active Substance: ACETAMINOPHEN\OPIUM
     Indication: TOXICITY TO VARIOUS AGENTS
     Dosage: 16 DOSAGE FORMS
     Route: 048
     Dates: start: 20190512
  2. TRAMADOL (CHLORHYDRATE DE) [Suspect]
     Active Substance: TRAMADOL HYDROCHLORIDE
     Indication: TOXICITY TO VARIOUS AGENTS
     Dosage: 30 DOSAGE FORMS
     Route: 048
     Dates: start: 20190512
  3. PARACETAMOL [Suspect]
     Active Substance: ACETAMINOPHEN
     Indication: TOXICITY TO VARIOUS AGENTS
     Dosage: 48 GRAM
     Route: 048
     Dates: start: 20190512

REACTIONS (2)
  - Analgesic drug level increased [Recovered/Resolved]
  - Somnolence [Recovered/Resolved]

NARRATIVE: CASE EVENT DATE: 20190512
